FAERS Safety Report 10153976 (Version 1)
Quarter: 2014Q2

REPORT INFORMATION
  Report Type: Spontaneous
  Country: US (occurrence: US)
  Receive Date: 20140506
  Receipt Date: 20140506
  Transmission Date: 20141212
  Serious: No
  Sender: FDA-Public Use
  Company Number: US-SHIRE-US201401675

PATIENT
  Age: 7 Year
  Sex: Female

DRUGS (1)
  1. VYVANSE [Suspect]
     Indication: PRODUCT USED FOR UNKNOWN INDICATION
     Dosage: 40 MG, UNKNOWN
     Route: 048
     Dates: start: 201403

REACTIONS (4)
  - Psychomotor hyperactivity [Unknown]
  - Agitation [Unknown]
  - Mydriasis [Unknown]
  - Middle insomnia [Unknown]
